FAERS Safety Report 23520258 (Version 2)
Quarter: 2025Q4

REPORT INFORMATION
  Report Type: Spontaneous
  Country: US (occurrence: US)
  Receive Date: 20240214
  Receipt Date: 20251222
  Transmission Date: 20260117
  Serious: Yes (Hospitalization, Other)
  Sender: CIPLA
  Company Number: US-CIPLA LTD.-2024US01443

PATIENT

DRUGS (2)
  1. TERBINAFINE [Suspect]
     Active Substance: TERBINAFINE
     Indication: Onychomycosis
     Dosage: UNK (LAST YEAR)
     Route: 048
  2. TERBINAFINE [Suspect]
     Active Substance: TERBINAFINE
     Dosage: UNK (2 MONTHS AGO)
     Route: 048

REACTIONS (3)
  - Aplastic anaemia [Recovering/Resolving]
  - Pancytopenia [Recovering/Resolving]
  - Contusion [Unknown]
